FAERS Safety Report 25283631 (Version 1)
Quarter: 2025Q2

REPORT INFORMATION
  Report Type: Spontaneous
  Country: FR (occurrence: FR)
  Receive Date: 20250508
  Receipt Date: 20250508
  Transmission Date: 20250717
  Serious: Yes (Life-Threatening)
  Sender: FERRING
  Company Number: FR-FERRINGPH-2006-00075FE

PATIENT

DRUGS (4)
  1. MINIRIN [Suspect]
     Active Substance: DESMOPRESSIN ACETATE
     Indication: Platelet disorder
     Route: 042
     Dates: start: 20051014, end: 20051014
  2. IOPAMIDOL [Suspect]
     Active Substance: IOPAMIDOL
     Indication: X-ray
     Route: 037
     Dates: start: 20051014, end: 20051014
  3. PREDNISONE [Suspect]
     Active Substance: PREDNISONE
     Indication: Sciatica
     Route: 037
     Dates: start: 20051014, end: 20051014
  4. XYLOCAINE [Suspect]
     Active Substance: LIDOCAINE HYDROCHLORIDE
     Indication: Local anaesthesia
     Route: 058
     Dates: start: 20051014, end: 20051014

REACTIONS (2)
  - Cardiac arrest [Recovered/Resolved]
  - Product use in unapproved indication [Recovered/Resolved]

NARRATIVE: CASE EVENT DATE: 20051014
